FAERS Safety Report 8488595-2 (Version None)
Quarter: 2012Q2

REPORT INFORMATION
  Report Type: 
  Country: None (occurrence: None)
  Receive Date: 20120626
  Receipt Date: 20120611
  Transmission Date: 20120825
  Serious: Yes (Other)
  Sender: FDA-Public Use
  Company Number: 2011MA014742

PATIENT
  Sex: Male
  Weight: 72.5755 kg

DRUGS (7)
  1. PEPCID [Concomitant]
  2. METOCLOPRAMIDE [Suspect]
     Dosage: PO
     Route: 048
     Dates: start: 20070101, end: 20091203
  3. MAGNESIUM HYDROXIDE TAB [Concomitant]
  4. CALCIUM CARBONATE [Concomitant]
  5. MYLANTA [Concomitant]
  6. OMEPRAZOLE [Concomitant]
  7. TAGAMET [Concomitant]

REACTIONS (6)
  - EMOTIONAL DISORDER [None]
  - TARDIVE DYSKINESIA [None]
  - MUSCULOSKELETAL STIFFNESS [None]
  - ECONOMIC PROBLEM [None]
  - TREMOR [None]
  - BENIGN PROSTATIC HYPERPLASIA [None]
